FAERS Safety Report 21151077 (Version 2)
Quarter: 2022Q4

REPORT INFORMATION
  Report Type: Report from Study
  Country: US (occurrence: US)
  Receive Date: 20220729
  Receipt Date: 20221021
  Transmission Date: 20230113
  Serious: Yes (Hospitalization)
  Sender: FDA-Public Use
  Company Number: US-ABBVIE-22K-163-4486121-00

PATIENT
  Age: 66 Year
  Sex: Male

DRUGS (1)
  1. IMBRUVICA [Suspect]
     Active Substance: IBRUTINIB
     Indication: Waldenstrom^s macroglobulinaemia
     Dosage: STRENGTH- 420 MILLIGRAM
     Route: 048
     Dates: start: 20220502

REACTIONS (5)
  - Pneumonia [Unknown]
  - Pain [Not Recovered/Not Resolved]
  - Investigation abnormal [Unknown]
  - Unevaluable event [Unknown]
  - Fluid retention [Unknown]

NARRATIVE: CASE EVENT DATE: 20221017
